FAERS Safety Report 6288773-7 (Version None)
Quarter: 2009Q3

REPORT INFORMATION
  Report Type: 
  Country: None (occurrence: None)
  Receive Date: 20090729
  Receipt Date: 20090727
  Transmission Date: 20100115
  Serious: Yes (Other)
  Sender: FDA-Public Use
  Company Number: US-BRISTOL-MYERS SQUIBB COMPANY-14717037

PATIENT
  Age: 30 Year
  Sex: Female

DRUGS (3)
  1. REYATAZ [Suspect]
  2. TRUVADA [Concomitant]
  3. BACTRIM [Concomitant]

REACTIONS (3)
  - EAR CONGESTION [None]
  - LYMPHADENOPATHY [None]
  - PERIORBITAL OEDEMA [None]
